FAERS Safety Report 5425000-4 (Version None)
Quarter: 2007Q3

REPORT INFORMATION
  Report Type: 
  Country: None (occurrence: None)
  Receive Date: 20070822
  Receipt Date: 20070814
  Transmission Date: 20080115
  Serious: Yes (Disabling)
  Sender: FDA-Public Use
  Company Number: 163-21880-07080918

PATIENT
  Age: 84 Year
  Sex: Female

DRUGS (1)
  1. REVLIMID (LENALIDOMIDE) (10 MILLIGRAMS, CAPSULES) [Suspect]
     Indication: MYELODYSPLASTIC SYNDROME
     Dosage: 10 MG, 1 IN 1 D, ORAL
     Route: 048
     Dates: start: 20070712, end: 20070101

REACTIONS (2)
  - ABASIA [None]
  - PAIN [None]
